FAERS Safety Report 5372232-X (Version None)
Quarter: 2007Q2

REPORT INFORMATION
  Report Type: 
  Country: None (occurrence: None)
  Receive Date: 20070615
  Receipt Date: 20061206
  Transmission Date: 20071010
  Serious: Yes (Other)
  Sender: FDA-Public Use
  Company Number: 200619898US

PATIENT
  Sex: Female

DRUGS (7)
  1. LANTUS [Suspect]
     Indication: DIABETES MELLITUS NON-INSULIN-DEPENDENT
     Dosage: QD
  2. LANTUS [Suspect]
     Indication: DIABETES MELLITUS NON-INSULIN-DEPENDENT
     Dosage: BID
  3. LANTUS [Suspect]
     Indication: DIABETES MELLITUS NON-INSULIN-DEPENDENT
     Dosage: 60 U QAM
  4. NOVOLOG [Concomitant]
  5. VALSARTAN             (DIOVANE) [Concomitant]
  6. ZOCOR [Concomitant]
  7. METOPROLOL SUCCINATE [Concomitant]

REACTIONS (3)
  - DRUG INEFFECTIVE [None]
  - HYPOGLYCAEMIA [None]
  - PALPITATIONS [None]
